FAERS Safety Report 5606224-X (Version None)
Quarter: 2008Q1

REPORT INFORMATION
  Report Type: 
  Country: None (occurrence: None)
  Receive Date: 20080129
  Receipt Date: 20070226
  Transmission Date: 20080703
  Serious: No
  Sender: FDA-Public Use
  Company Number: A0641019A

PATIENT
  Age: 10 Year
  Sex: Female

DRUGS (2)
  1. WELLBUTRIN [Suspect]
     Dates: start: 20070224
  2. CONCERTA [Concomitant]

REACTIONS (2)
  - HEART RATE INCREASED [None]
  - HYPERTENSION [None]
